FAERS Safety Report 13246802 (Version 2)
Quarter: 2017Q1

REPORT INFORMATION
  Report Type: Spontaneous
  Country: US (occurrence: US)
  Receive Date: 20170217
  Receipt Date: 20170222
  Transmission Date: 20170428
  Serious: Yes (Hospitalization)
  Sender: FDA-Public Use
  Company Number: US-ROCHE-1895173

PATIENT
  Sex: Male
  Weight: 98.97 kg

DRUGS (11)
  1. XANAX [Concomitant]
     Active Substance: ALPRAZOLAM
  2. AMBIEN [Concomitant]
     Active Substance: ZOLPIDEM TARTRATE
  3. PAXIL [Concomitant]
     Active Substance: PAROXETINE HYDROCHLORIDE
  4. COUMADIN [Concomitant]
     Active Substance: WARFARIN SODIUM
  5. ABILIFY [Concomitant]
     Active Substance: ARIPIPRAZOLE
  6. DECADRON [Concomitant]
     Active Substance: DEXAMETHASONE
  7. ALECENSA [Suspect]
     Active Substance: ALECTINIB HYDROCHLORIDE
     Indication: LUNG NEOPLASM MALIGNANT
     Dosage: TAKE 4 CAPSULES TWICE A DAY
     Route: 048
     Dates: start: 20140528
  8. XALKORI [Concomitant]
     Active Substance: CRIZOTINIB
  9. XGEVA [Concomitant]
     Active Substance: DENOSUMAB
  10. LAMICTAL [Concomitant]
     Active Substance: LAMOTRIGINE
  11. LEXAPRO [Concomitant]
     Active Substance: ESCITALOPRAM OXALATE

REACTIONS (2)
  - Urinary tract infection [Unknown]
  - Off label use [Unknown]
